FAERS Safety Report 5117017-4 (Version None)
Quarter: 2006Q3

REPORT INFORMATION
  Report Type: 
  Country: None (occurrence: None)
  Receive Date: 20060921
  Receipt Date: 20060915
  Transmission Date: 20061208
  Serious: Yes (Life-Threatening)
  Sender: FDA-Public Use
  Company Number: 200610893BYL

PATIENT
  Age: 69 Year
  Sex: Male
  Weight: 47 kg

DRUGS (4)
  1. PLASMANATE [Suspect]
     Indication: VOLUME BLOOD INCREASED
     Dosage: 400 ML, INTRAVENOUS DRIP
     Route: 041
     Dates: start: 20060712
  2. SEVOFLURANE [Concomitant]
  3. CARBOCAIN [Concomitant]
  4. MUSCULAX [Concomitant]

REACTIONS (1)
  - ANAPHYLACTIC SHOCK [None]
